FAERS Safety Report 5857940-6 (Version None)
Quarter: 2008Q3

REPORT INFORMATION
  Report Type: 
  Country: None (occurrence: None)
  Receive Date: 20080825
  Receipt Date: 20080825
  Transmission Date: 20090109
  Serious: Yes (Hospitalization, Other)
  Sender: FDA-Public Use
  Company Number: None

PATIENT
  Age: 56 Year
  Sex: Female
  Weight: 77.1115 kg

DRUGS (1)
  1. PHENYTOIN SOD EXT 100MG SUN PHARMACEUTI [Suspect]
     Indication: CONVULSION
     Dosage: 3 CAPS TWICE A DAY PO
     Route: 048
     Dates: start: 20080715, end: 20080807

REACTIONS (5)
  - ANTICONVULSANT DRUG LEVEL ABOVE THERAPEUTIC [None]
  - DIZZINESS [None]
  - FEELING DRUNK [None]
  - GAIT DISTURBANCE [None]
  - PHARMACEUTICAL PRODUCT COMPLAINT [None]
